FAERS Safety Report 9361163 (Version 2)
Quarter: 2014Q1

REPORT INFORMATION
  Report Type: Spontaneous
  Country: JP (occurrence: JP)
  Receive Date: 20130621
  Receipt Date: 20140123
  Transmission Date: 20141002
  Serious: Yes (Other)
  Sender: FDA-Public Use
  Company Number: JP-PFIZER INC-2013184680

PATIENT
  Age: 47 Year
  Sex: Female
  Weight: 46 kg

DRUGS (9)
  1. ZOSYN [Suspect]
     Indication: PYELONEPHRITIS
     Dosage: 4.5 G, 3X/DAY
     Route: 041
     Dates: start: 20130517, end: 20130531
  2. ZOSYN [Suspect]
     Indication: FEBRILE NEUTROPENIA
  3. OXYCONTIN [Concomitant]
     Dosage: UNK
     Route: 048
  4. OXYNORM [Concomitant]
     Dosage: UNK
     Route: 048
  5. ZYPREXA [Concomitant]
     Dosage: UNK
  6. PRIMPERAN [Concomitant]
     Dosage: UNK
  7. MAGMITT [Concomitant]
     Dosage: UNK
     Route: 048
  8. LOXOPROFEN SODIUM HYDRATE [Concomitant]
     Dosage: UNK
     Route: 048
  9. ZOLPIDEM TARTRATE [Concomitant]
     Dosage: UNK
     Route: 048

REACTIONS (2)
  - Rhabdomyolysis [Recovered/Resolved]
  - Off label use [Unknown]
